FAERS Safety Report 21126114 (Version 3)
Quarter: 2022Q3

REPORT INFORMATION
  Report Type: Spontaneous
  Country: US (occurrence: US)
  Receive Date: 20220725
  Receipt Date: 20220901
  Transmission Date: 20221026
  Serious: No
  Sender: FDA-Public Use
  Company Number: US-PFIZER INC-202200986244

PATIENT
  Age: 37 Year
  Sex: Male
  Weight: 104.33 kg

DRUGS (4)
  1. PAXLOVID [Suspect]
     Active Substance: NIRMATRELVIR\RITONAVIR
     Indication: COVID-19 treatment
     Dosage: 3 IN MORNING AND 3 AT NIGHT, AND FOR 5 DAYS
     Dates: start: 20220719, end: 20220720
  2. LEXAPRO [Concomitant]
     Active Substance: ESCITALOPRAM OXALATE
     Indication: Anxiety
     Dosage: START: BEEN TAKING IT FOR YEARS
  3. KLONOPIN [Concomitant]
     Active Substance: CLONAZEPAM
     Indication: Anxiety
     Dosage: TAKE EITHER A 0.5MG A DAY OR 1MG A DAY, TAKES AS NEEDED
  4. KLONOPIN [Concomitant]
     Active Substance: CLONAZEPAM
     Dosage: TAKE EITHER A 0.5MG A DAY OR 1MG A DAY, TAKES AS NEEDED

REACTIONS (3)
  - Intentional product misuse [Unknown]
  - Wrong technique in product usage process [Unknown]
  - Diarrhoea [Not Recovered/Not Resolved]

NARRATIVE: CASE EVENT DATE: 20220719
